FAERS Safety Report 8424263 (Version 5)
Quarter: 2015Q1

REPORT INFORMATION
  Report Type: Spontaneous
  Country: IN (occurrence: IN)
  Receive Date: 20120224
  Receipt Date: 20150121
  Transmission Date: 20150721
  Serious: Yes (Death, Hospitalization, Other)
  Sender: FDA-Public Use
  Company Number: IN-PFIZER INC-2012020143

PATIENT
  Age: 50 Year
  Sex: Male

DRUGS (1)
  1. SUTENT [Suspect]
     Active Substance: SUNITINIB MALATE
     Indication: METASTATIC RENAL CELL CARCINOMA
     Dosage: 37.5 MG, 1X/DAY
     Route: 048
     Dates: start: 20111224, end: 20120531

REACTIONS (9)
  - Disease progression [Fatal]
  - Furuncle [Not Recovered/Not Resolved]
  - Skin ulcer [Recovering/Resolving]
  - Dysgeusia [Not Recovered/Not Resolved]
  - Metastatic renal cell carcinoma [Fatal]
  - Rectal ulcer [Recovering/Resolving]
  - Furuncle [Recovering/Resolving]
  - Myocardial infarction [Unknown]
  - Mouth ulceration [Recovering/Resolving]

NARRATIVE: CASE EVENT DATE: 2012
